FAERS Safety Report 24069516 (Version 1)
Quarter: 2024Q3

REPORT INFORMATION
  Report Type: Report from Study
  Country: ZA (occurrence: ZA)
  Receive Date: 20240710
  Receipt Date: 20240710
  Transmission Date: 20241016
  Serious: No
  Sender: ROCHE
  Company Number: ZA-ROCHE-3568524

PATIENT
  Sex: Male

DRUGS (1)
  1. VABYSMO [Suspect]
     Active Substance: FARICIMAB\FARICIMAB-SVOA
     Indication: Macular degeneration
     Dosage: INJECTION 2: 13 MAY 2024?INJECTION 3: 25 JULY 2024
     Route: 065
     Dates: start: 20240325

REACTIONS (2)
  - Off label use [Unknown]
  - No adverse event [Unknown]
